FAERS Safety Report 24390367 (Version 2)
Quarter: 2024Q4

REPORT INFORMATION
  Report Type: Report from Study
  Country: US (occurrence: US)
  Receive Date: 20241003
  Receipt Date: 20241029
  Transmission Date: 20250115
  Serious: Yes (Other)
  Sender: CSL BEHRING
  Company Number: US-BEH-2024179313

PATIENT
  Age: 70 Year
  Sex: Female
  Weight: 43.084 kg

DRUGS (1)
  1. ZEMAIRA [Suspect]
     Active Substance: .ALPHA.1-PROTEINASE INHIBITOR HUMAN
     Indication: Alpha-1 antitrypsin deficiency
     Dosage: UNK, BIW(EVERY OTHER WEEK)
     Route: 042

REACTIONS (3)
  - Pseudomonas infection [Unknown]
  - Pneumonia [Unknown]
  - Nasopharyngitis [Unknown]
